FAERS Safety Report 4909213-3 (Version None)
Quarter: 2006Q1

REPORT INFORMATION
  Report Type: 
  Country: None (occurrence: None)
  Receive Date: 20060210
  Receipt Date: 20060210
  Transmission Date: 20060701
  Serious: Yes (Death, Life-Threatening, Hospitalization, Other)
  Sender: FDA-Public Use
  Company Number: None

PATIENT
  Age: 16 Year
  Sex: Female
  Weight: 65.7716 kg

DRUGS (2)
  1. ADDERALL XR 30 [Suspect]
     Indication: ATTENTION DEFICIT/HYPERACTIVITY DISORDER
     Dosage: 2 CAPSULES  DAILY  PO
     Route: 048
     Dates: start: 20030101, end: 20041002
  2. ADDERALL XR 30 [Suspect]
     Indication: DEPRESSION
     Dosage: 2 CAPSULES  DAILY  PO
     Route: 048
     Dates: start: 20030101, end: 20041002

REACTIONS (8)
  - ARRHYTHMIA [None]
  - CONVULSION [None]
  - DIZZINESS [None]
  - FEELING COLD [None]
  - HEART RATE INCREASED [None]
  - KIDNEY INFECTION [None]
  - MUSCULAR WEAKNESS [None]
  - PALPITATIONS [None]
